FAERS Safety Report 8606420-3 (Version None)
Quarter: 2012Q3

REPORT INFORMATION
  Report Type: 
  Country: None (occurrence: None)
  Receive Date: 20120820
  Receipt Date: 20120810
  Transmission Date: 20120928
  Serious: Yes (Hospitalization, Other)
  Sender: FDA-Public Use
  Company Number: AR-MUTUAL PHARMACEUTICAL COMPANY, INC.-FNFB20120001

PATIENT
  Age: 57 Year
  Sex: Male

DRUGS (4)
  1. LOSARTAN POTASSIUM [Concomitant]
     Indication: HYPERTENSION
     Route: 065
  2. MYCOPHENOLATE MOFETIL [Suspect]
     Indication: IMMUNOSUPPRESSION
     Route: 065
  3. MEPREDNISONE [Concomitant]
     Indication: IMMUNOSUPPRESSION
     Route: 065
  4. FENOFIBRATE (MICRONIZED) [Suspect]
     Indication: BLOOD TRIGLYCERIDES INCREASED
     Route: 065

REACTIONS (2)
  - FEBRILE NEUTROPENIA [None]
  - DRUG INTERACTION [None]
